FAERS Safety Report 21366731 (Version 2)
Quarter: 2022Q4

REPORT INFORMATION
  Report Type: Spontaneous
  Country: US (occurrence: US)
  Receive Date: 20220923
  Receipt Date: 20221021
  Transmission Date: 20230112
  Serious: No
  Sender: FDA-Public Use
  Company Number: US-SA-SAC20220916001492

PATIENT
  Age: 33 Year
  Sex: Female
  Weight: 65.306 kg

DRUGS (12)
  1. NEXVIAZYME [Suspect]
     Active Substance: AVALGLUCOSIDASE ALFA-NGPT
     Indication: Glycogen storage disease type II
     Dosage: 1300 MG, QOW
     Route: 042
     Dates: start: 20220720
  2. DIPHENHYDRAMINE [Concomitant]
     Active Substance: DIPHENHYDRAMINE
  3. ALBUTEROL SULFATE [Concomitant]
     Active Substance: ALBUTEROL SULFATE
  4. ASPIRIN [Concomitant]
     Active Substance: ASPIRIN
  5. VITAMIN D3 [Concomitant]
     Active Substance: CHOLECALCIFEROL
  6. EPINEPHRINE [Concomitant]
     Active Substance: EPINEPHRINE
  7. VITAMIN C [Concomitant]
     Active Substance: ASCORBIC ACID
  8. STERILE WATER [Concomitant]
     Active Substance: WATER
  9. .ALPHA.-TOCOPHEROL [Concomitant]
     Active Substance: .ALPHA.-TOCOPHEROL
  10. DEXTROSE [Concomitant]
     Active Substance: DEXTROSE
  11. LIDOCAINE [Concomitant]
     Active Substance: LIDOCAINE
  12. ALBUTEROL SULFATE [Concomitant]
     Active Substance: ALBUTEROL SULFATE

REACTIONS (3)
  - Hypertension [Unknown]
  - Pain [Unknown]
  - Blood pressure increased [Unknown]
